FAERS Safety Report 10169157 (Version 1)
Quarter: 2014Q2

REPORT INFORMATION
  Report Type: Spontaneous
  Country: US (occurrence: None)
  Receive Date: 20140509
  Receipt Date: 20140509
  Transmission Date: 20141212
  Serious: Yes (Other)
  Sender: FDA-Public Use
  Company Number: 2322536

PATIENT
  Sex: 0

DRUGS (1)
  1. OXALIPLATIN [Suspect]
     Route: 041

REACTIONS (5)
  - Blepharospasm [None]
  - Muscle twitching [None]
  - Paraesthesia [None]
  - Chest pain [None]
  - Headache [None]
